FAERS Safety Report 12252115 (Version 2)
Quarter: 2018Q2

REPORT INFORMATION
  Report Type: Spontaneous
  Country: CA (occurrence: CA)
  Receive Date: 20160411
  Receipt Date: 20180523
  Transmission Date: 20180711
  Serious: Yes (Hospitalization, Other)
  Sender: FDA-Public Use
  Company Number: CA-ABBVIE-16K-028-1600645-00

PATIENT
  Age: 56 Year
  Sex: Female

DRUGS (11)
  1. RITUXAN [Suspect]
     Active Substance: RITUXIMAB
     Indication: PRODUCT USED FOR UNKNOWN INDICATION
     Route: 042
  2. HYDROCHLOROTHIAZIDE. [Suspect]
     Active Substance: HYDROCHLOROTHIAZIDE
     Indication: PRODUCT USED FOR UNKNOWN INDICATION
     Route: 065
  3. PREDNISONE. [Concomitant]
     Active Substance: PREDNISONE
     Indication: PRODUCT USED FOR UNKNOWN INDICATION
  4. HUMIRA [Suspect]
     Active Substance: ADALIMUMAB
     Indication: PRODUCT USED FOR UNKNOWN INDICATION
     Route: 058
  5. ACTEMRA [Suspect]
     Active Substance: TOCILIZUMAB
     Indication: PRODUCT USED FOR UNKNOWN INDICATION
     Route: 065
  6. ENBREL [Suspect]
     Active Substance: ETANERCEPT
     Indication: RHEUMATOID ARTHRITIS
     Route: 058
     Dates: start: 20121108
  7. ENBREL [Suspect]
     Active Substance: ETANERCEPT
     Route: 058
     Dates: start: 20130121
  8. ARAVA [Concomitant]
     Active Substance: LEFLUNOMIDE
     Indication: PRODUCT USED FOR UNKNOWN INDICATION
  9. LEFLUNOMIDE. [Concomitant]
     Active Substance: LEFLUNOMIDE
     Indication: PRODUCT USED FOR UNKNOWN INDICATION
  10. XELJANZ [Concomitant]
     Active Substance: TOFACITINIB CITRATE
     Indication: RHEUMATOID ARTHRITIS
     Route: 048
  11. GOLD [Concomitant]
     Active Substance: GOLD
     Indication: PRODUCT USED FOR UNKNOWN INDICATION

REACTIONS (23)
  - Surgery [Unknown]
  - Blood pressure increased [Unknown]
  - Osteoarthritis [Unknown]
  - Food allergy [Unknown]
  - Haemorrhage [Unknown]
  - Drug ineffective [Unknown]
  - Osteoporosis [Unknown]
  - Contusion [Unknown]
  - Injection site bruising [Unknown]
  - Rash [Unknown]
  - Pruritus generalised [Unknown]
  - Adverse drug reaction [Unknown]
  - Injection site erythema [Unknown]
  - Skin haemorrhage [Unknown]
  - Femur fracture [Unknown]
  - Oedema peripheral [Unknown]
  - Femur fracture [Unknown]
  - Hypersensitivity [Unknown]
  - Injection site hypersensitivity [Unknown]
  - Back pain [Unknown]
  - Peripheral swelling [Unknown]
  - Pain [Unknown]
  - Dysphagia [Unknown]

NARRATIVE: CASE EVENT DATE: 20130112
